FAERS Safety Report 26099262 (Version 2)
Quarter: 2025Q4

REPORT INFORMATION
  Report Type: Spontaneous
  Country: US (occurrence: US)
  Receive Date: 20251128
  Receipt Date: 20251222
  Transmission Date: 20260118
  Serious: No
  Sender: SANOFI AVENTIS
  Company Number: US-SA-2025SA354923

PATIENT
  Age: 67 Year
  Sex: Female

DRUGS (1)
  1. DUPIXENT [Suspect]
     Active Substance: DUPILUMAB
     Indication: Eczema nummular
     Dosage: 300 MG, QOW
     Route: 058

REACTIONS (8)
  - Feeling abnormal [Unknown]
  - Pain in extremity [Unknown]
  - Gait disturbance [Unknown]
  - Brain fog [Unknown]
  - Dizziness [Unknown]
  - Sinusitis [Unknown]
  - Injection site pain [Unknown]
  - Eye irritation [Unknown]
